FAERS Safety Report 15601254 (Version 1)
Quarter: 2018Q4

REPORT INFORMATION
  Report Type: Spontaneous
  Country: US (occurrence: US)
  Receive Date: 20181108
  Receipt Date: 20181108
  Transmission Date: 20190205
  Serious: Yes (Disabling)
  Sender: FDA-Public Use
  Company Number: None

PATIENT
  Age: 5 Year
  Sex: Female
  Weight: 17.1 kg

DRUGS (1)
  1. CEFIXIME FOR ORAL SUSPENSION, USP 100MG / 5ML [Suspect]
     Active Substance: CEFIXIME
     Indication: EAR INFECTION
     Dosage: ?          QUANTITY:1 1 BOTTLE 50ML;?
     Route: 048
     Dates: start: 20181103, end: 20181108

REACTIONS (3)
  - Drug ineffective [None]
  - Tympanic membrane perforation [None]
  - Product substitution issue [None]

NARRATIVE: CASE EVENT DATE: 20181108
